FAERS Safety Report 4627669-0 (Version None)
Quarter: 2005Q2

REPORT INFORMATION
  Report Type: 
  Country: None (occurrence: None)
  Receive Date: 20050401
  Receipt Date: 20050322
  Transmission Date: 20051028
  Serious: Yes (Hospitalization)
  Sender: FDA-Public Use
  Company Number: 2005-03-1578

PATIENT
  Age: 70 Year
  Sex: Male

DRUGS (1)
  1. CELESTAMINE TAB [Suspect]
     Indication: CHRONIC SINUSITIS
     Dosage: 1 TAB DAILY ORAL
     Route: 048
     Dates: start: 20011001, end: 20041001

REACTIONS (4)
  - AUTOIMMUNE HEPATITIS [None]
  - CHROMATURIA [None]
  - EPIGASTRIC DISCOMFORT [None]
  - NAUSEA [None]
